FAERS Safety Report 5589381-3 (Version None)
Quarter: 2008Q1

REPORT INFORMATION
  Report Type: 
  Country: None (occurrence: None)
  Receive Date: 20080114
  Receipt Date: 20080110
  Transmission Date: 20080703
  Serious: Yes (Death, Hospitalization, Other)
  Sender: FDA-Public Use
  Company Number: US-BRISTOL-MYERS SQUIBB COMPANY-14017529

PATIENT
  Age: 62 Year
  Sex: Female

DRUGS (9)
  1. TAXOL [Suspect]
     Indication: BREAST CANCER METASTATIC
     Route: 040
     Dates: start: 20070914, end: 20071115
  2. AVASTIN [Suspect]
     Indication: BREAST CANCER METASTATIC
     Route: 040
     Dates: start: 20070914, end: 20071115
  3. PERCOCET [Concomitant]
  4. DECADRON [Concomitant]
     Dosage: ALSO GIVEN 20MG IVPB
     Route: 042
  5. SPIRONOLACTONE [Concomitant]
     Route: 048
  6. COMPAZINE [Concomitant]
     Route: 048
  7. ATIVAN [Concomitant]
     Route: 048
  8. DIPHENHYDRAMINE HCL [Concomitant]
     Route: 042
  9. KYTRIL [Concomitant]
     Route: 042

REACTIONS (3)
  - HAEMORRHAGE [None]
  - HEPATIC FAILURE [None]
  - VENOOCCLUSIVE LIVER DISEASE [None]
